FAERS Safety Report 5602166-4 (Version None)
Quarter: 2008Q1

REPORT INFORMATION
  Report Type: 
  Country: None (occurrence: None)
  Receive Date: 20080125
  Receipt Date: 20080116
  Transmission Date: 20080703
  Serious: Yes (Hospitalization)
  Sender: FDA-Public Use
  Company Number: PHBS2008BR01064

PATIENT
  Age: 76 Year
  Sex: Female
  Weight: 68 kg

DRUGS (6)
  1. DIOVAN [Suspect]
     Indication: HYPERTENSION
     Dosage: 80 MG, QD
     Route: 048
     Dates: start: 20040101, end: 20071223
  2. OMEPRAZOLE [Concomitant]
     Indication: ABDOMINAL PAIN UPPER
     Dosage: 20 MG, QD
     Route: 048
     Dates: start: 20070101
  3. VASOGARD [Concomitant]
     Indication: PAIN IN EXTREMITY
     Dosage: 100 MG, QD
     Route: 048
     Dates: start: 20040101, end: 20080108
  4. ISOSORBIDE MONONITRATE [Concomitant]
     Indication: CHEST PAIN
     Dosage: 2 DF, BID
     Route: 048
     Dates: start: 20040101
  5. CARVEDIOL [Concomitant]
     Indication: HEART RATE DECREASED
     Dosage: 1 DF, QD
     Route: 048
     Dates: start: 20070101, end: 20080108
  6. CAPTOPRIL [Concomitant]
     Indication: HYPERTENSION
     Dates: start: 20071228, end: 20080107

REACTIONS (9)
  - ANGIOPLASTY [None]
  - CATHETERISATION VENOUS [None]
  - CHEST PAIN [None]
  - FEELING ABNORMAL [None]
  - ISCHAEMIA [None]
  - LIMB DISCOMFORT [None]
  - SOMNOLENCE [None]
  - THROMBOSIS [None]
  - WEIGHT DECREASED [None]
